FAERS Safety Report 17016936 (Version 1)
Quarter: 2019Q4

REPORT INFORMATION
  Report Type: Spontaneous
  Country: US (occurrence: US)
  Receive Date: 20191004
  Receipt Date: 20191004
  Transmission Date: 20200122
  Serious: No
  Sender: FDA-Public Use
  Company Number: None

PATIENT
  Age: 74 Year
  Sex: Female

DRUGS (3)
  1. NINLARO [Suspect]
     Active Substance: IXAZOMIB CITRATE
     Indication: PLASMA CELL MYELOMA
     Dosage: ?          OTHER FREQUENCY:OTHER;?
     Route: 048
     Dates: start: 20190925, end: 20190925
  2. VELCADE [Concomitant]
     Active Substance: BORTEZOMIB
  3. POMALSYT [Concomitant]

REACTIONS (3)
  - Vomiting [None]
  - Nausea [None]
  - Diarrhoea [None]

NARRATIVE: CASE EVENT DATE: 20190925
